FAERS Safety Report 7381377-4 (Version None)
Quarter: 2011Q1

REPORT INFORMATION
  Report Type: 
  Country: None (occurrence: None)
  Receive Date: 20110321
  Receipt Date: 20110304
  Transmission Date: 20110831
  Serious: Yes (Hospitalization)
  Sender: FDA-Public Use
  Company Number: AUR-APL-2011-00884

PATIENT
  Age: 74 Year
  Sex: Female

DRUGS (4)
  1. EZETIMIBE [Suspect]
     Dosage: 10MG-ORAL
     Route: 048
  2. METFORMIN [Suspect]
  3. PIOGLITAZONE HYDROCHLORIDE [Concomitant]
  4. RAMIPRIL [Concomitant]

REACTIONS (2)
  - PANCREATITIS ACUTE [None]
  - LACTIC ACIDOSIS [None]
